FAERS Safety Report 13357693 (Version 2)
Quarter: 2017Q1

REPORT INFORMATION
  Report Type: Spontaneous
  Country: US (occurrence: US)
  Receive Date: 20170322
  Receipt Date: 20170331
  Transmission Date: 20170429
  Serious: Yes (Hospitalization, Other)
  Sender: FDA-Public Use
  Company Number: US-SUN PHARMACEUTICAL INDUSTRIES LTD-2017US-136274

PATIENT
  Age: 49 Year
  Sex: Female

DRUGS (2)
  1. CYCLOPHOSPHAMIDE. [Concomitant]
     Active Substance: CYCLOPHOSPHAMIDE
     Indication: BREAST CANCER
     Dosage: ON MONTHLY BASIS
     Route: 065
  2. DOCETAXEL. [Suspect]
     Active Substance: DOCETAXEL
     Indication: BREAST CANCER
     Dosage: ON A MONTHLY BASIS
     Route: 065

REACTIONS (4)
  - Scleroderma renal crisis [Recovering/Resolving]
  - Systemic scleroderma [Recovering/Resolving]
  - Pulmonary arterial hypertension [Recovering/Resolving]
  - Thrombotic microangiopathy [Recovering/Resolving]
